FAERS Safety Report 4420763-9 (Version None)
Quarter: 2004Q3

REPORT INFORMATION
  Report Type: 
  Country: None (occurrence: None)
  Receive Date: 20040809
  Receipt Date: 20040518
  Transmission Date: 20050211
  Serious: No
  Sender: FDA-Public Use
  Company Number: US-GLAXOSMITHKLINE-A0511300A

PATIENT
  Age: 73 Year
  Sex: Female

DRUGS (6)
  1. PAXIL [Suspect]
     Indication: DEPRESSION
     Route: 048
  2. WELLBUTRIN [Suspect]
     Indication: DEPRESSION
     Dosage: 150MG PER DAY
     Route: 048
     Dates: start: 20040514
  3. LORAZEPAM [Concomitant]
  4. LIPITOR [Concomitant]
  5. ACIPHEX [Concomitant]
  6. AMBIEN [Concomitant]

REACTIONS (6)
  - BALANCE DISORDER [None]
  - DIZZINESS [None]
  - ERUCTATION [None]
  - FLATULENCE [None]
  - INSOMNIA [None]
  - WEIGHT INCREASED [None]
